FAERS Safety Report 22612504 (Version 1)
Quarter: 2023Q2

REPORT INFORMATION
  Report Type: Spontaneous
  Country: CN (occurrence: CN)
  Receive Date: 20230617
  Receipt Date: 20230617
  Transmission Date: 20230721
  Serious: Yes (Other)
  Sender: FDA-Public Use
  Company Number: CN-AMGEN-CHNSP2023102013

PATIENT
  Age: 32 Year
  Sex: Male

DRUGS (4)
  1. BLINCYTO [Suspect]
     Active Substance: BLINATUMOMAB
     Indication: Acute lymphocytic leukaemia
     Dosage: 8.75 MICROGRAM, D1-D4
     Route: 042
     Dates: start: 20230427
  2. BLINCYTO [Suspect]
     Active Substance: BLINATUMOMAB
     Dosage: 17.5 MICROGRAM, D5-D6
     Route: 042
  3. BLINCYTO [Suspect]
     Active Substance: BLINATUMOMAB
     Dosage: 28 MICROGRAM, QD
     Route: 042
     Dates: start: 20230503, end: 20230512
  4. OLVEREMBATINIB [Concomitant]
     Active Substance: OLVEREMBATINIB
     Indication: Acute lymphocytic leukaemia

REACTIONS (1)
  - Hepatic function abnormal [Recovering/Resolving]

NARRATIVE: CASE EVENT DATE: 20230512
